FAERS Safety Report 8829031 (Version 1)
Quarter: 2012Q4

REPORT INFORMATION
  Report Type: Spontaneous
  Country: US (occurrence: None)
  Receive Date: 20121004
  Receipt Date: 20121004
  Transmission Date: 20130627
  Serious: Yes (Other)
  Sender: FDA-Public Use
  Company Number: TCI2012A05533

PATIENT
  Age: 47 Year
  Sex: Male

DRUGS (1)
  1. ROZEREM [Suspect]
     Indication: INSOMNIA
     Dosage: 8 mg (8 mg , 1 in 1 D)
     Route: 048
     Dates: start: 20120620, end: 20120725

REACTIONS (1)
  - Hyperthermia malignant [None]
